FAERS Safety Report 4490733-3 (Version None)
Quarter: 2004Q4

REPORT INFORMATION
  Report Type: 
  Country: None (occurrence: None)
  Receive Date: 20041029
  Receipt Date: 20041014
  Transmission Date: 20050328
  Serious: Yes (Death)
  Sender: FDA-Public Use
  Company Number: 2004S1003079

PATIENT
  Sex: Male

DRUGS (1)
  1. TETRACYCLINE HYDROCHLORIDE [Suspect]

REACTIONS (1)
  - DEATH [None]
